FAERS Safety Report 5144113-8 (Version None)
Quarter: 2006Q4

REPORT INFORMATION
  Report Type: 
  Country: None (occurrence: None)
  Receive Date: 20061106
  Receipt Date: 20060308
  Transmission Date: 20070319
  Serious: No
  Sender: FDA-Public Use
  Company Number: US-GLAXOSMITHKLINE-A0596738A

PATIENT
  Age: 1 Year
  Sex: Male

DRUGS (2)
  1. AMOXIL [Suspect]
     Indication: EAR INFECTION
     Dosage: 250MG THREE TIMES PER DAY
     Route: 048
     Dates: start: 20030101
  2. NO CONCURRENT MEDICATION [Concomitant]

REACTIONS (3)
  - FORMICATION [None]
  - PRURITUS [None]
  - SCREAMING [None]
